FAERS Safety Report 8139744-7 (Version None)
Quarter: 2012Q1

REPORT INFORMATION
  Report Type: 
  Country: None (occurrence: None)
  Receive Date: 20120215
  Receipt Date: 20120210
  Transmission Date: 20120608
  Serious: Yes (Other)
  Sender: FDA-Public Use
  Company Number: PHHY2011US06549

PATIENT
  Sex: Female

DRUGS (11)
  1. ATIVAN [Concomitant]
     Dosage: UNK UKN, UNK
     Route: 048
  2. FISH OIL [Concomitant]
     Dosage: 1200 MG, UNK
  3. VESICARE [Concomitant]
  4. GILENYA [Suspect]
     Dosage: 0.5 MG, QD
     Route: 048
     Dates: start: 20120106
  5. FAMPRIDINE [Concomitant]
     Dosage: UNK UKN, UNK
     Route: 048
     Dates: start: 20110101
  6. CITRACAL + D [Concomitant]
  7. AMPYRA [Concomitant]
  8. GILENYA [Suspect]
     Indication: MULTIPLE SCLEROSIS
     Dosage: 0.5 MG, QD
     Route: 048
     Dates: start: 20110104, end: 20111101
  9. RESILAR [Concomitant]
     Dosage: UNK UKN, UNK
     Route: 048
     Dates: start: 20110101
  10. LISINOPRIL [Concomitant]
     Dosage: UNK UKN, UNK
     Route: 048
  11. ADAVIN [Concomitant]

REACTIONS (5)
  - LYMPHOEDEMA [None]
  - VITREOUS DETACHMENT [None]
  - LIVER DISORDER [None]
  - NAUSEA [None]
  - FATIGUE [None]
